FAERS Safety Report 9630008 (Version 2)
Quarter: 2013Q4

REPORT INFORMATION
  Report Type: Spontaneous
  Country: US (occurrence: US)
  Receive Date: 20131017
  Receipt Date: 20131022
  Transmission Date: 20140711
  Serious: Yes (Other)
  Sender: FDA-Public Use
  Company Number: ALCN2013US005169

PATIENT
  Sex: Female
  Weight: 58.96 kg

DRUGS (1)
  1. LATANOPROST [Suspect]
     Indication: GLAUCOMA
     Dosage: 1 GTT, QD
     Route: 047
     Dates: start: 20121127, end: 201306

REACTIONS (2)
  - Hallucination, visual [Recovered/Resolved]
  - Headache [Recovered/Resolved]
